FAERS Safety Report 21860838 (Version 2)
Quarter: 2023Q1

REPORT INFORMATION
  Report Type: Spontaneous
  Country: US (occurrence: US)
  Receive Date: 20230113
  Receipt Date: 20230113
  Transmission Date: 20230417
  Serious: No
  Sender: FDA-Public Use
  Company Number: US-NOVOPROD-988844

PATIENT
  Age: 40 Year
  Sex: Male

DRUGS (2)
  1. WEGOVY [Suspect]
     Active Substance: SEMAGLUTIDE
     Indication: Body mass index abnormal
     Dosage: UNK
     Route: 058
     Dates: start: 202203
  2. WEGOVY [Suspect]
     Active Substance: SEMAGLUTIDE
     Indication: Body mass index abnormal
     Dosage: 0.25 MG
     Route: 058
     Dates: start: 20220607, end: 20221017

REACTIONS (2)
  - Blood creatinine increased [Not Recovered/Not Resolved]
  - Glomerular filtration rate decreased [Not Recovered/Not Resolved]

NARRATIVE: CASE EVENT DATE: 20220324
